FAERS Safety Report 6713323-8 (Version None)
Quarter: 2010Q2

REPORT INFORMATION
  Report Type: 
  Country: None (occurrence: None)
  Receive Date: 20100506
  Receipt Date: 20100423
  Transmission Date: 20101027
  Serious: Yes (Hospitalization)
  Sender: FDA-Public Use
  Company Number: DE-ELI_LILLY_AND_COMPANY-DE201005000069

PATIENT
  Age: 86 Year
  Sex: Male

DRUGS (7)
  1. BERLINSULIN REGULAR [Suspect]
     Indication: TYPE 2 DIABETES MELLITUS
     Dosage: 24 U, DAILY (1/D)
     Route: 058
     Dates: start: 20030101
  2. BERLINSULIN REGULAR [Suspect]
     Dosage: UNK, UNKNOWN
     Route: 058
  3. BERLINSULIN NPH [Suspect]
     Indication: TYPE 2 DIABETES MELLITUS
     Dosage: 8 U, DAILY (1/D)
     Route: 058
     Dates: start: 20030101
  4. BERLINSULIN NPH [Suspect]
     Dosage: 6 U, DAILY (1/D)
     Route: 058
  5. BEOFENAC [Concomitant]
     Indication: ANALGESIC THERAPY
     Dosage: 100 MG, DAILY (1/D)
     Route: 048
     Dates: start: 20080830, end: 20080830
  6. METOHEXAL [Concomitant]
     Indication: HYPERTENSION
     Dosage: 47.5 MG, DAILY (1/D)
  7. ASPIRIN [Concomitant]
     Indication: CARDIOVASCULAR EVENT PROPHYLAXIS
     Dosage: UNK, UNKNOWN

REACTIONS (2)
  - HYPOGLYCAEMIA [None]
  - VOMITING [None]
